FAERS Safety Report 18626157 (Version 1)
Quarter: 2020Q4

REPORT INFORMATION
  Report Type: Spontaneous
  Country: IT (occurrence: IT)
  Receive Date: 20201216
  Receipt Date: 20201216
  Transmission Date: 20210114
  Serious: Yes (Death, Other)
  Sender: FDA-Public Use
  Company Number: IT-ALSI-2020000533

PATIENT
  Age: 73 Year
  Sex: Male

DRUGS (6)
  1. DEXAMETHASONE SODIUM PHOSPHATE. [Suspect]
     Active Substance: DEXAMETHASONE SODIUM PHOSPHATE
  2. BARICITINIB (BARICITINIB) [Suspect]
     Active Substance: BARICITINIB
  3. REMDESIVIR (REMDESIVIR) [Suspect]
     Active Substance: REMDESIVIR
  4. OXYGEN. [Suspect]
     Active Substance: OXYGEN
     Indication: COVID-19
     Route: 055
  5. HYDROXYCHLOROQUINE (HYDROXYCHLOROQUINE) [Suspect]
     Active Substance: HYDROXYCHLOROQUINE
  6. DOXYCYCLINE HYCLATE (DOXYCYCLINE) [Suspect]
     Active Substance: DOXYCYCLINE HYCLATE

REACTIONS (4)
  - Death [Fatal]
  - Off label use [Unknown]
  - PaO2/FiO2 ratio decreased [Unknown]
  - Bronchopulmonary aspergillosis [Unknown]
